FAERS Safety Report 26148377 (Version 1)
Quarter: 2025Q4

REPORT INFORMATION
  Report Type: Report from Study
  Country: CA (occurrence: CA)
  Receive Date: 20251212
  Receipt Date: 20251212
  Transmission Date: 20260119
  Serious: Yes (Other)
  Sender: JOHNSON AND JOHNSON
  Company Number: CA-JNJFOC-20251142900

PATIENT
  Age: 42 Year
  Sex: Male
  Weight: 67.13 kg

DRUGS (1)
  1. REMICADE [Suspect]
     Active Substance: INFLIXIMAB
     Indication: Colitis ulcerative
     Route: 041
     Dates: start: 20251030, end: 20251113

REACTIONS (2)
  - Colectomy [Unknown]
  - Off label use [Unknown]

NARRATIVE: CASE EVENT DATE: 20251030
